FAERS Safety Report 25004811 (Version 1)
Quarter: 2025Q1

REPORT INFORMATION
  Report Type: Spontaneous
  Country: CN (occurrence: CN)
  Receive Date: 20250224
  Receipt Date: 20250224
  Transmission Date: 20250409
  Serious: Yes (Hospitalization, Other)
  Sender: PFIZER
  Company Number: CN-PFIZER INC-PV202500020698

PATIENT
  Age: 84 Year
  Sex: Male
  Weight: 50 kg

DRUGS (19)
  1. CEFOPERAZONE SODIUM\SULBACTAM SODIUM [Suspect]
     Active Substance: CEFOPERAZONE SODIUM\SULBACTAM SODIUM
     Indication: Anti-infective therapy
     Dosage: 3 G, 2X/DAY, PUMP INJECTION
     Dates: start: 20250206, end: 20250217
  2. TIGECYCLINE [Suspect]
     Active Substance: TIGECYCLINE
     Indication: Anti-infective therapy
     Dosage: 100 MG, 2X/DAY
     Route: 041
     Dates: start: 20250206, end: 20250208
  3. LEVOFLOXACIN [Suspect]
     Active Substance: LEVOFLOXACIN
     Indication: Anti-infective therapy
     Dosage: 0.5 G, 1X/DAY
     Route: 041
     Dates: start: 20250131, end: 20250206
  4. TAZOBACTAM SODIUM [Suspect]
     Active Substance: TAZOBACTAM SODIUM
     Indication: Anti-infective therapy
     Dosage: 4.5 G, 3X/DAY
     Route: 041
     Dates: start: 20250109, end: 20250115
  5. TAZOBACTAM SODIUM [Suspect]
     Active Substance: TAZOBACTAM SODIUM
     Dosage: 4.5 G, 3X/DAY, PUMP INJECTION
     Dates: start: 20250115, end: 20250116
  6. TAZOBACTAM SODIUM [Suspect]
     Active Substance: TAZOBACTAM SODIUM
     Dosage: 4.5 G, 3X/DAY, PUMP INJECTION
     Dates: start: 20250122, end: 20250131
  7. CEFTAZIDIME [Suspect]
     Active Substance: CEFTAZIDIME
     Indication: Anti-infective therapy
     Dosage: 1 G, 2X/DAY, PUMP INJECTION
     Dates: start: 20250202, end: 20250206
  8. POLYMYXIN B SULFATE [Suspect]
     Active Substance: POLYMYXIN B SULFATE
     Indication: Anti-infective therapy
     Dosage: 750000 IU, 2X/DAY, LYOPHILIZED POWDER
     Route: 041
     Dates: start: 20250207, end: 20250212
  9. POLYMYXIN B SULFATE [Suspect]
     Active Substance: POLYMYXIN B SULFATE
     Dosage: 750000 IU, 2X/DAY, LYOPHILIZED POWDER
     Route: 041
     Dates: start: 20250212, end: 20250217
  10. MEROPENEM [Suspect]
     Active Substance: MEROPENEM
     Indication: Anti-infective therapy
     Dosage: 1 G, 3X/DAY, PUMP INJECTION
     Dates: start: 20250116, end: 20250122
  11. SODIUM CHLORIDE [Concomitant]
     Active Substance: SODIUM CHLORIDE
     Indication: Vehicle solution use
     Dosage: 100 ML, 3X/DAY
     Route: 041
     Dates: start: 20250109, end: 20250115
  12. SODIUM CHLORIDE [Concomitant]
     Active Substance: SODIUM CHLORIDE
     Dosage: 100 ML, 2X/DAY
     Route: 041
     Dates: start: 20250207, end: 20250212
  13. SODIUM CHLORIDE [Concomitant]
     Active Substance: SODIUM CHLORIDE
     Indication: Vehicle solution use
     Dosage: 50 ML, 3X/DAY, PUMP INJECTION
     Dates: start: 20250115, end: 20250116
  14. SODIUM CHLORIDE [Concomitant]
     Active Substance: SODIUM CHLORIDE
     Dosage: 50 ML, 3X/DAY, PUMP INJECTION
     Dates: start: 20250116, end: 20250122
  15. SODIUM CHLORIDE [Concomitant]
     Active Substance: SODIUM CHLORIDE
     Dosage: 50 ML, 3X/DAY, PUMP INJECTION
     Dates: start: 20250122, end: 20250131
  16. SODIUM CHLORIDE [Concomitant]
     Active Substance: SODIUM CHLORIDE
     Dosage: 50 ML, 2X/DAY, PUMP INJECTION
     Dates: start: 20250202, end: 20250206
  17. DEXTROSE [Concomitant]
     Active Substance: DEXTROSE MONOHYDRATE
     Indication: Vehicle solution use
     Dosage: 100 ML, 2X/DAY
     Route: 041
     Dates: start: 20250206, end: 20250208
  18. DEXTROSE [Concomitant]
     Active Substance: DEXTROSE MONOHYDRATE
     Dosage: 100 ML, 2X/DAY
     Route: 041
     Dates: start: 20250212, end: 20250217
  19. DEXTROSE [Concomitant]
     Active Substance: DEXTROSE MONOHYDRATE
     Indication: Vehicle solution use
     Dosage: 50 ML, 2X/DAY, PUMP INJECTION
     Dates: start: 20250206, end: 20250217

REACTIONS (2)
  - Diarrhoea [Recovering/Resolving]
  - Dysbiosis [Recovering/Resolving]

NARRATIVE: CASE EVENT DATE: 20250208
